FAERS Safety Report 7631433-8 (Version None)
Quarter: 2011Q3

REPORT INFORMATION
  Report Type: 
  Country: None (occurrence: None)
  Receive Date: 20110725
  Receipt Date: 20110715
  Transmission Date: 20111222
  Serious: Yes (Life-Threatening, Hospitalization, Other)
  Sender: FDA-Public Use
  Company Number: US-ELI_LILLY_AND_COMPANY-2006PV021950

PATIENT
  Sex: Male
  Weight: 120.2 kg

DRUGS (22)
  1. NEXIUM [Concomitant]
     Indication: GASTROOESOPHAGEAL REFLUX DISEASE
     Dosage: 140 MG, QD
     Route: 048
  2. VITAMIN D [Concomitant]
     Indication: VITAMIN SUPPLEMENTATION
     Dosage: 5000 IU, UNK
     Route: 048
  3. EXENATIDE [Suspect]
     Dosage: 10 UG, 2/D
     Route: 058
     Dates: start: 20050901
  4. EXENATIDE [Suspect]
     Dosage: 10 UG, BID
     Route: 058
  5. METFORMIN [Concomitant]
     Dosage: 1000 MG, BID
  6. ALLEGRA [Concomitant]
     Indication: HYPERSENSITIVITY
     Dosage: 180 MG, QD
     Route: 048
  7. GLIMEPIRIDE [Concomitant]
     Indication: BLOOD GLUCOSE INCREASED
     Dosage: 3 MG, QD
     Route: 048
  8. CHROMIUM PICOLINATE [Concomitant]
     Indication: PRODUCT USED FOR UNKNOWN INDICATION
     Dosage: 400 UG, QD
  9. VYTORIN [Concomitant]
     Indication: BLOOD CHOLESTEROL
     Dosage: UNK, QD
     Route: 048
  10. ASPIRIN [Concomitant]
     Indication: PROPHYLAXIS
     Dosage: 325 MG, QD
     Route: 048
  11. HALCION [Concomitant]
     Indication: SLEEP DISORDER THERAPY
     Dosage: 0.25 MG, EACH EVENING
  12. MAGNESIUM OXIDE [Concomitant]
     Indication: MINERAL SUPPLEMENTATION
     Dosage: 400 MG, QD
     Route: 048
  13. LOVAZA [Concomitant]
     Indication: BLOOD TRIGLYCERIDES
     Dosage: 1 MG, BID
     Route: 048
  14. PAXIL [Concomitant]
     Indication: DEPRESSION
     Dosage: 12.5 MG, QD
  15. METFORMIN [Concomitant]
     Indication: TYPE 2 DIABETES MELLITUS
     Dosage: 2000 MG, DAILY (1/D)
     Route: 048
     Dates: start: 20051001
  16. ZOCOR [Concomitant]
     Dosage: UNK, UNK
  17. ALPHA LIPOIC ACID [Concomitant]
     Indication: DIABETES MELLITUS
     Dosage: UNK, QD
  18. CO Q10 [Concomitant]
     Dosage: UNK, QD
     Route: 048
  19. IODINE [Concomitant]
     Indication: SUPPLEMENTATION THERAPY
     Dosage: 400 MG, BID
  20. ZYLOPRIM [Concomitant]
     Indication: GOUT
     Dosage: 300 MG, QD
  21. EXENATIDE [Suspect]
     Indication: TYPE 2 DIABETES MELLITUS
     Dosage: 5 UG, 2/D
     Route: 058
     Dates: start: 20050801, end: 20050901
  22. LASIX [Concomitant]
     Dosage: UNK, UNK

REACTIONS (9)
  - CARDIAC OPERATION [None]
  - DEPENDENCE ON RESPIRATOR [None]
  - BLOOD GLUCOSE INCREASED [None]
  - WOUND [None]
  - VEIN DISORDER [None]
  - PAIN [None]
  - DRUG INEFFECTIVE [None]
  - INJECTION SITE HAEMATOMA [None]
  - WEIGHT DECREASED [None]
